FAERS Safety Report 23767033 (Version 1)
Quarter: 2024Q2

REPORT INFORMATION
  Report Type: Spontaneous
  Country: US (occurrence: US)
  Receive Date: 20240422
  Receipt Date: 20240422
  Transmission Date: 20240716
  Serious: Yes (Death, Other)
  Sender: FDA-Public Use
  Company Number: US-BRISTOL-MYERS SQUIBB COMPANY-2024-061994

PATIENT
  Age: 66 Year
  Sex: Male
  Weight: 145.15 kg

DRUGS (1)
  1. REVLIMID [Suspect]
     Active Substance: LENALIDOMIDE
     Indication: Monoclonal gammopathy
     Dosage: 3 WKS ON,1 WK OFF
     Route: 048

REACTIONS (2)
  - Death [Fatal]
  - Off label use [Unknown]
